FAERS Safety Report 6858497-3 (Version None)
Quarter: 2010Q3

REPORT INFORMATION
  Report Type: 
  Country: None (occurrence: None)
  Receive Date: 20100719
  Receipt Date: 20080210
  Transmission Date: 20110219
  Serious: No
  Sender: FDA-Public Use
  Company Number: US-PFIZER INC-2008013504

PATIENT
  Sex: Female
  Weight: 127 kg

DRUGS (3)
  1. CHANTIX [Suspect]
     Indication: SMOKING CESSATION THERAPY
     Dates: start: 20071001
  2. CYTOMEL [Concomitant]
     Indication: THYROID DISORDER
  3. FLEXERIL [Concomitant]

REACTIONS (3)
  - HANGOVER [None]
  - SEDATION [None]
  - SOMNOLENCE [None]
